FAERS Safety Report 6590062-8 (Version None)
Quarter: 2010Q1

REPORT INFORMATION
  Report Type: 
  Country: None (occurrence: None)
  Receive Date: 20100219
  Receipt Date: 20100215
  Transmission Date: 20100710
  Serious: Yes (Death)
  Sender: FDA-Public Use
  Company Number: PHEH2010US02529

PATIENT
  Sex: Female
  Weight: 37.642 kg

DRUGS (7)
  1. EXJADE [Suspect]
     Indication: ACUTE MYELOID LEUKAEMIA
     Dosage: 1625 MG DAILY
     Route: 048
     Dates: start: 20090924
  2. NOXAFIL [Concomitant]
     Dosage: 200 MG, UNK
  3. VALPROIC ACID [Concomitant]
     Dosage: 250 MG, UNK
  4. VITAMIN B-12 [Concomitant]
     Dosage: 1000MCG TAB
  5. PRILOSEC [Concomitant]
     Dosage: 10 MG, UNK
  6. ACYCLOVIR [Concomitant]
     Dosage: 400 TAB
  7. FOLIC ACID [Concomitant]
     Dosage: 400MCG TAB

REACTIONS (1)
  - DEATH [None]
